FAERS Safety Report 7743939-1 (Version None)
Quarter: 2011Q3

REPORT INFORMATION
  Report Type: 
  Country: None (occurrence: None)
  Receive Date: 20110912
  Receipt Date: 20110906
  Transmission Date: 20111222
  Serious: Yes (Hospitalization)
  Sender: FDA-Public Use
  Company Number: JP-GLAXOSMITHKLINE-B0740797A

PATIENT
  Sex: Male
  Weight: 60 kg

DRUGS (12)
  1. ALLOPURINOL [Concomitant]
     Route: 048
  2. TICLOPIDINE HCL [Concomitant]
     Route: 048
  3. MUCOSTA [Concomitant]
     Route: 048
  4. METHYCOBAL [Concomitant]
     Route: 048
  5. CONIEL [Concomitant]
     Route: 048
  6. MARZULENE [Concomitant]
     Route: 048
  7. SELTOUCH [Concomitant]
     Route: 061
  8. DOXAZOSIN MESYLATE [Concomitant]
     Route: 048
  9. VALTREX [Suspect]
     Indication: HERPES ZOSTER
     Dosage: 1000MG PER DAY
     Route: 048
     Dates: start: 20110813, end: 20110814
  10. ACETAMINOPHEN [Concomitant]
     Route: 065
  11. NITOROL R [Concomitant]
     Route: 065
  12. VOLTAREN [Concomitant]
     Route: 054

REACTIONS (1)
  - ALTERED STATE OF CONSCIOUSNESS [None]
